FAERS Safety Report 9404037 (Version 2)
Quarter: 2013Q3

REPORT INFORMATION
  Report Type: Report from Study
  Country: CA (occurrence: CA)
  Receive Date: 20130717
  Receipt Date: 20130820
  Transmission Date: 20140515
  Serious: Yes (Other)
  Sender: FDA-Public Use
  Company Number: CA-JNJFOC-20130703893

PATIENT
  Sex: Male
  Weight: 88.7 kg

DRUGS (2)
  1. REMICADE [Suspect]
     Indication: CROHN^S DISEASE
     Dosage: RECEIVED ON WEEK 0, 2, 6, THEREAFTER EVERY 8 WEEKS.
     Route: 042
     Dates: start: 20130702
  2. REMICADE [Suspect]
     Indication: CROHN^S DISEASE
     Route: 042

REACTIONS (4)
  - Surgery [Unknown]
  - Impaired healing [Unknown]
  - Post procedural infection [Unknown]
  - Psoriasis [Unknown]
